FAERS Safety Report 4662415-6 (Version None)
Quarter: 2005Q2

REPORT INFORMATION
  Report Type: 
  Country: None (occurrence: None)
  Receive Date: 20050512
  Receipt Date: 20050429
  Transmission Date: 20051028
  Serious: Yes (Disabling)
  Sender: FDA-Public Use
  Company Number: 2005060154

PATIENT
  Age: 67 Year
  Sex: Female

DRUGS (1)
  1. ZITHROMAX [Suspect]
     Indication: BRONCHITIS
     Dosage: 500 MG ORAL
     Route: 048
     Dates: start: 20050316, end: 20050318

REACTIONS (2)
  - ANOSMIA [None]
  - TREATMENT NONCOMPLIANCE [None]
